FAERS Safety Report 8457672-4 (Version None)
Quarter: 2012Q2

REPORT INFORMATION
  Report Type: 
  Country: None (occurrence: None)
  Receive Date: 20120618
  Receipt Date: 20120618
  Transmission Date: 20120825
  Serious: Yes (Hospitalization, Disabling)
  Sender: FDA-Public Use
  Company Number: None

PATIENT
  Sex: Female
  Weight: 105.6881 kg

DRUGS (1)
  1. NORA-BE BIRTH CONTROL 0.35MG WATSON [Suspect]
     Indication: HEADACHE
     Dosage: 0.35 MG DAILY
     Dates: start: 20101205, end: 20120601

REACTIONS (5)
  - OPTIC NEURITIS [None]
  - IMPAIRED WORK ABILITY [None]
  - IMPAIRED DRIVING ABILITY [None]
  - BLINDNESS UNILATERAL [None]
  - VISUAL ACUITY REDUCED [None]
